FAERS Safety Report 7789389-3 (Version None)
Quarter: 2011Q3

REPORT INFORMATION
  Report Type: 
  Country: None (occurrence: None)
  Receive Date: 20110930
  Receipt Date: 20110920
  Transmission Date: 20111222
  Serious: Yes (Hospitalization, Disabling)
  Sender: FDA-Public Use
  Company Number: US-BAYER-2011-092409

PATIENT
  Age: 31 Year
  Sex: Female
  Weight: 108.84 kg

DRUGS (9)
  1. ACETYLSALICYLIC ACID SRT [Concomitant]
     Dosage: 325 MG, QD
     Route: 048
  2. ZESTRIL [Concomitant]
     Dosage: 30 MG, HS
     Route: 048
  3. WELLBUTRIN SR [Concomitant]
     Dosage: 150 MG, UNK
  4. PREVACID [Concomitant]
     Dosage: 30 MG, QD
     Route: 048
  5. STATIN [Concomitant]
  6. SYNTHROID [Concomitant]
     Dosage: UNK UNK, QD
     Route: 048
     Dates: start: 20000101
  7. TRIAMTERENE AND HYDROCHLOROTHIAZIDE [Concomitant]
     Dosage: 37.5MG / 25MG, QD
     Dates: start: 20040414
  8. YASMIN [Suspect]
     Indication: CONTRACEPTION
     Dosage: UNK
     Route: 048
     Dates: start: 20030301, end: 20041101
  9. EFFEXOR XR [Concomitant]
     Dosage: UNK
     Dates: start: 20021119, end: 20030206

REACTIONS (5)
  - ASTHENIA [None]
  - DEPRESSION [None]
  - MYOCARDIAL INFARCTION [None]
  - CHEST PAIN [None]
  - DYSPNOEA [None]
